FAERS Safety Report 4275164-3 (Version None)
Quarter: 2004Q1

REPORT INFORMATION
  Report Type: 
  Country: None (occurrence: None)
  Receive Date: 20040116
  Receipt Date: 20040109
  Transmission Date: 20041129
  Serious: Yes (Other)
  Sender: FDA-Public Use
  Company Number: 2004-01-0258

PATIENT
  Age: 66 Year
  Sex: Male

DRUGS (6)
  1. REBETOL [Suspect]
     Indication: HEPATITIS C
     Dosage: 400 MG QD ORAL
     Route: 048
     Dates: start: 20031104, end: 20040108
  2. INTRON A [Suspect]
     Indication: HEPATITIS C
     Dosage: 6 MU INTRAMUSCULAR
     Route: 030
     Dates: start: 20031104, end: 20040108
  3. NOVOLIN [Concomitant]
  4. ADALAT [Concomitant]
  5. DIOVAN [Concomitant]
  6. GLYBURIDE [Concomitant]

REACTIONS (3)
  - CONVULSION [None]
  - DEPRESSED LEVEL OF CONSCIOUSNESS [None]
  - INCOHERENT [None]
